FAERS Safety Report 16198103 (Version 1)
Quarter: 2019Q2

REPORT INFORMATION
  Report Type: Spontaneous
  Country: CA (occurrence: CA)
  Receive Date: 20190415
  Receipt Date: 20190415
  Transmission Date: 20190711
  Serious: Yes (Other)
  Sender: FDA-Public Use
  Company Number: CA-ABBVIE-19S-028-2739007-00

PATIENT
  Age: 65 Year
  Sex: Male

DRUGS (1)
  1. ANDROGEL [Suspect]
     Active Substance: TESTOSTERONE
     Indication: PRODUCT USED FOR UNKNOWN INDICATION
     Route: 065

REACTIONS (11)
  - Diabetes mellitus [Unknown]
  - Incoherent [Unknown]
  - Myocardial infarction [Unknown]
  - Drug dependence [Unknown]
  - Psychotic disorder [Unknown]
  - Feeling abnormal [Unknown]
  - Abnormal behaviour [Unknown]
  - Cardiac disorder [Unknown]
  - Fatigue [Unknown]
  - Drug ineffective [Unknown]
  - Depression [Unknown]
